FAERS Safety Report 9357572 (Version 1)
Quarter: 2013Q2

REPORT INFORMATION
  Report Type: Spontaneous
  Country: GB (occurrence: GB)
  Receive Date: 20130620
  Receipt Date: 20130620
  Transmission Date: 20140414
  Serious: Yes (Other)
  Sender: FDA-Public Use
  Company Number: GB-ASTRAZENECA-2013SE46684

PATIENT
  Sex: Female

DRUGS (1)
  1. LOSEC [Suspect]
     Route: 048

REACTIONS (1)
  - Thyroid cancer metastatic [Unknown]
